FAERS Safety Report 19145097 (Version 1)
Quarter: 2021Q2

REPORT INFORMATION
  Report Type: Spontaneous
  Country: US (occurrence: US)
  Receive Date: 20210416
  Receipt Date: 20210416
  Transmission Date: 20210717
  Serious: Yes (Hospitalization)
  Sender: FDA-Public Use
  Company Number: US-ASTRAZENECA-2021A304138

PATIENT
  Sex: Female

DRUGS (2)
  1. ASPIRIN. [Suspect]
     Active Substance: ASPIRIN
     Route: 065
  2. BRILINTA [Suspect]
     Active Substance: TICAGRELOR
     Route: 048

REACTIONS (5)
  - Hypersensitivity [Unknown]
  - Abdominal discomfort [Unknown]
  - Frustration tolerance decreased [Unknown]
  - Illness [Unknown]
  - Fatigue [Unknown]
